FAERS Safety Report 5654623-2 (Version None)
Quarter: 2008Q1

REPORT INFORMATION
  Report Type: 
  Country: None (occurrence: None)
  Receive Date: 20080219
  Receipt Date: 20080107
  Transmission Date: 20080703
  Serious: No
  Sender: FDA-Public Use
  Company Number: WAES 0801USA00941

PATIENT
  Age: 80 Year
  Sex: Female

DRUGS (3)
  1. JANUVIA [Suspect]
     Indication: TYPE 2 DIABETES MELLITUS
     Dosage: 100 MG/DAILY/PO
     Route: 048
     Dates: start: 20080103
  2. COZAAR [Concomitant]
  3. LANTUS [Concomitant]

REACTIONS (7)
  - ABDOMINAL PAIN UPPER [None]
  - BACK PAIN [None]
  - CONSTIPATION [None]
  - FLATULENCE [None]
  - MYALGIA [None]
  - NAUSEA [None]
  - TREMOR [None]
